FAERS Safety Report 20567148 (Version 3)
Quarter: 2022Q2

REPORT INFORMATION
  Report Type: Spontaneous
  Country: US (occurrence: US)
  Receive Date: 20220308
  Receipt Date: 20220516
  Transmission Date: 20220721
  Serious: No
  Sender: FDA-Public Use
  Company Number: US-PFIZER INC-202200309120

PATIENT
  Age: 68 Year
  Sex: Male
  Weight: 81.65 kg

DRUGS (3)
  1. GENOTROPIN [Suspect]
     Active Substance: SOMATROPIN
     Dosage: UNK, DAILY (4 CLICKS INJECTED NIGHTLY)
  2. TESTOSTERONE [Concomitant]
     Active Substance: TESTOSTERONE
     Dosage: UNK, DAILY (PUMP OUT 4 PUMPS AND HE DOES IT DAILY)
     Route: 051
  3. METHADONE HYDROCHLORIDE [Concomitant]
     Active Substance: METHADONE HYDROCHLORIDE
     Indication: Pain
     Dosage: 10 MG (TAKE UP TO 7 PER DAY.)

REACTIONS (1)
  - Device breakage [Unknown]
